FAERS Safety Report 5747753-8 (Version None)
Quarter: 2008Q2

REPORT INFORMATION
  Report Type: 
  Country: None (occurrence: None)
  Receive Date: 20080523
  Receipt Date: 20080515
  Transmission Date: 20081010
  Serious: Yes (Other)
  Sender: FDA-Public Use
  Company Number: IE-ASTRAZENECA-2008GB00965

PATIENT
  Age: 24946 Day
  Sex: Male

DRUGS (3)
  1. ZOLADEX [Suspect]
     Indication: PROSTATE CANCER
     Dosage: GIVEN ON DAY 8
     Route: 058
     Dates: start: 20080102
  2. CASODEX [Suspect]
     Indication: PROSTATE CANCER
     Dosage: GIVEN ON DAYS 1-30
     Route: 048
     Dates: start: 20071226, end: 20080123
  3. RADIOTHERAPY [Suspect]
     Indication: PROSTATE CANCER
     Dosage: STARTING ON DAY 8, RADIOTHERAPY WAS GIVEN ONCE DAILY 5 DAYS A WEEK
     Dates: start: 20080102, end: 20080221

REACTIONS (1)
  - RASH ERYTHEMATOUS [None]
